FAERS Safety Report 11512846 (Version 2)
Quarter: 2015Q4

REPORT INFORMATION
  Report Type: Spontaneous
  Country: CH (occurrence: CH)
  Receive Date: 20150916
  Receipt Date: 20151008
  Transmission Date: 20160304
  Serious: Yes (Other)
  Sender: FDA-Public Use
  Company Number: CH-SUN PHARMACEUTICAL INDUSTRIES LTD-2015RR-103111

PATIENT

DRUGS (1)
  1. BACLOFEN. [Suspect]
     Active Substance: BACLOFEN
     Indication: PRODUCT USED FOR UNKNOWN INDICATION
     Dosage: RAISED THE BACLOFEN DOSES WITHOUT RESPECTING THE PRESCRIPTION UP TO 150 MG IN 1 WEEK
     Route: 065

REACTIONS (2)
  - Intentional product use issue [Not Recovered/Not Resolved]
  - Toxicity to various agents [Recovered/Resolved]
